FAERS Safety Report 16902711 (Version 2)
Quarter: 2019Q4

REPORT INFORMATION
  Report Type: Spontaneous
  Country: ES (occurrence: ES)
  Receive Date: 20191010
  Receipt Date: 20191211
  Transmission Date: 20200122
  Serious: Yes (Hospitalization, Other)
  Sender: FDA-Public Use
  Company Number: ES-AUROBINDO-AUR-APL-2019-065294

PATIENT
  Age: 70 Year
  Sex: Male

DRUGS (4)
  1. ENALAPRIL;HYDROCHLOROTHIAZIDE [Suspect]
     Active Substance: ENALAPRIL\HYDROCHLOROTHIAZIDE
     Indication: HYPERTENSION
     Dosage: UNK
     Route: 065
  2. PARACETAMOL 1000 MG TABLETS [Suspect]
     Active Substance: ACETAMINOPHEN
     Indication: OSTEOARTHRITIS
     Dosage: 1 GRAM
     Route: 065
  3. IBUPROFEN 400MG [Suspect]
     Active Substance: IBUPROFEN
     Indication: PRODUCT USED FOR UNKNOWN INDICATION
     Dosage: 400 MILLIGRAM
     Route: 065
  4. SIMVASTATIN 40MG [Suspect]
     Active Substance: SIMVASTATIN
     Indication: DYSLIPIDAEMIA
     Dosage: 40 MILLIGRAM
     Route: 065

REACTIONS (4)
  - Ischaemic stroke [Recovered/Resolved]
  - Paraesthesia oral [Unknown]
  - Hypertensive crisis [Unknown]
  - Speech disorder [Unknown]
